FAERS Safety Report 25714747 (Version 1)
Quarter: 2025Q3

REPORT INFORMATION
  Report Type: Spontaneous
  Country: US (occurrence: US)
  Receive Date: 20250822
  Receipt Date: 20250822
  Transmission Date: 20251020
  Serious: Yes (Hospitalization, Other)
  Sender: AMGEN
  Company Number: US-AMGEN-USASP2025163400

PATIENT
  Age: 42 Year
  Sex: Female

DRUGS (1)
  1. BEVACIZUMAB [Suspect]
     Active Substance: BEVACIZUMAB
     Indication: Cervix carcinoma
     Route: 065

REACTIONS (11)
  - Small intestinal obstruction [Unknown]
  - Enterocutaneous fistula [Recovering/Resolving]
  - Anaemia [Unknown]
  - Bacteroides test positive [Unknown]
  - Escherichia test positive [Unknown]
  - Enterococcus test positive [Unknown]
  - Pelvic abscess [Unknown]
  - Myositis [Unknown]
  - Drug ineffective for unapproved indication [Unknown]
  - Abdominal pain [Unknown]
  - Off label use [Unknown]
